FAERS Safety Report 7469557-0 (Version None)
Quarter: 2011Q2

REPORT INFORMATION
  Report Type: 
  Country: None (occurrence: None)
  Receive Date: 20110510
  Receipt Date: 20110506
  Transmission Date: 20111010
  Serious: Yes (Death)
  Sender: FDA-Public Use
  Company Number: PHFR2011GB02639

PATIENT
  Sex: Male

DRUGS (1)
  1. CLOZARIL [Suspect]
     Indication: SCHIZOPHRENIA
     Dates: start: 20090318

REACTIONS (6)
  - DEATH [None]
  - INTESTINAL OBSTRUCTION [None]
  - DIZZINESS [None]
  - DIARRHOEA [None]
  - MALAISE [None]
  - VOMITING [None]
